FAERS Safety Report 7766217-3 (Version None)
Quarter: 2011Q3

REPORT INFORMATION
  Report Type: 
  Country: None (occurrence: None)
  Receive Date: 20110921
  Receipt Date: 20110909
  Transmission Date: 20111222
  Serious: Yes (Death, Other)
  Sender: FDA-Public Use
  Company Number: US-AMGEN-USASP2011005520

PATIENT
  Age: 50 Year
  Sex: Male
  Weight: 80 kg

DRUGS (4)
  1. ENBREL [Suspect]
     Indication: PSORIASIS
     Dosage: UNK
     Dates: start: 20071022
  2. FOLIC ACID [Concomitant]
  3. NEXIUM [Concomitant]
  4. TOPROL-XL [Concomitant]
     Dosage: UNK

REACTIONS (1)
  - ENDOCARDITIS [None]
